FAERS Safety Report 10184882 (Version 2)
Quarter: 2014Q3

REPORT INFORMATION
  Report Type: Spontaneous
  Country: KR (occurrence: KR)
  Receive Date: 20140521
  Receipt Date: 20140804
  Transmission Date: 20150326
  Serious: Yes (Hospitalization)
  Sender: FDA-Public Use
  Company Number: KR-RANBAXY-2014R1-81312

PATIENT
  Age: 70 Year
  Sex: Female

DRUGS (1)
  1. RADIOACTIVE IODINE THERAPY [Suspect]
     Active Substance: SODIUM IODIDE I-131
     Indication: PRODUCT USED FOR UNKNOWN INDICATION
     Dosage: 130 MCI, SINGLE
     Route: 065

REACTIONS (4)
  - Nausea [Recovered/Resolved]
  - Hyponatraemia [Recovered/Resolved]
  - Hypothyroidism [Recovered/Resolved]
  - Dizziness [Recovered/Resolved]
